FAERS Safety Report 8303593-7 (Version None)
Quarter: 2012Q2

REPORT INFORMATION
  Report Type: 
  Country: None (occurrence: None)
  Receive Date: 20120423
  Receipt Date: 20120418
  Transmission Date: 20120825
  Serious: No
  Sender: FDA-Public Use
  Company Number: US-BAYER-2012-037509

PATIENT
  Age: 2 Year
  Sex: Male

DRUGS (2)
  1. SORAFENIB (RAF KINASE INHIBITOR) [Suspect]
     Indication: HEPATOBLASTOMA
     Dosage: 200 MG/M2, BID, 4-WEEK  CYCLES
     Route: 048
  2. BEVACIZUMAB [Suspect]
     Indication: HEPATOBLASTOMA
     Dosage: 15 MG/KG, Q2WK

REACTIONS (1)
  - RASH [None]
